FAERS Safety Report 7629923-7 (Version None)
Quarter: 2011Q3

REPORT INFORMATION
  Report Type: 
  Country: None (occurrence: None)
  Receive Date: 20110722
  Receipt Date: 20110127
  Transmission Date: 20111222
  Serious: No
  Sender: FDA-Public Use
  Company Number: US-BAYER-2011-011816

PATIENT
  Sex: Female

DRUGS (1)
  1. BETASERON [Suspect]

REACTIONS (4)
  - SKIN DISCOLOURATION [None]
  - RASH PAPULAR [None]
  - INFLAMMATION [None]
  - ERYTHEMA [None]
